FAERS Safety Report 8545655-5 (Version None)
Quarter: 2012Q3

REPORT INFORMATION
  Report Type: 
  Country: None (occurrence: None)
  Receive Date: 20120727
  Receipt Date: 20120725
  Transmission Date: 20120928
  Serious: Yes (Disabling, Other)
  Sender: FDA-Public Use
  Company Number: US-PFIZER INC-2011127717

PATIENT
  Sex: Female
  Weight: 78.005 kg

DRUGS (11)
  1. WARFARIN [Concomitant]
     Indication: ANTICOAGULANT THERAPY
     Dosage: 5 MG, DAILY
  2. CELEBREX [Suspect]
     Dosage: 200 MG, 2X/DAY
     Route: 048
     Dates: start: 20020101, end: 20070101
  3. LISINOPRIL [Concomitant]
     Indication: HYPERTENSION
     Dosage: 25 MG, 2X/DAY
  4. TYLENOL [Concomitant]
     Dosage: UNK
  5. SIMVASTATIN [Concomitant]
     Indication: BLOOD CHOLESTEROL ABNORMAL
     Dosage: 20 MG, DAILY
  6. CELEBREX [Suspect]
     Indication: ARTHRITIS
     Dosage: UNK
  7. CELEBREX [Suspect]
     Dosage: UNK, 1X/DAY
     Dates: start: 20000101
  8. METFORMIN [Concomitant]
     Indication: DIABETES MELLITUS
     Dosage: UNK
  9. METOPROLOL [Concomitant]
     Indication: BLOOD PRESSURE ABNORMAL
     Dosage: 25 MG, 2X/DAY
  10. LISINOPRIL [Concomitant]
     Indication: BLOOD PRESSURE ABNORMAL
  11. WARFARIN SODIUM [Concomitant]
     Indication: ANTICOAGULANT THERAPY
     Dosage: 5 MG, DAILY

REACTIONS (5)
  - CEREBROVASCULAR ACCIDENT [None]
  - AMNESIA [None]
  - BLINDNESS UNILATERAL [None]
  - CARDIAC OPERATION [None]
  - HEADACHE [None]
